FAERS Safety Report 16259099 (Version 1)
Quarter: 2019Q2

REPORT INFORMATION
  Report Type: Report from Study
  Country: US (occurrence: US)
  Receive Date: 20190501
  Receipt Date: 20190501
  Transmission Date: 20190711
  Serious: Yes (Other)
  Sender: FDA-Public Use
  Company Number: US-ROCHE-2304069

PATIENT
  Age: 50 Year
  Sex: Female
  Weight: 74 kg

DRUGS (8)
  1. OCREVUS [Suspect]
     Active Substance: OCRELIZUMAB
     Indication: RELAPSING MULTIPLE SCLEROSIS
     Dosage: ONGOING: YES
     Route: 065
     Dates: start: 20190308
  2. OCREVUS [Suspect]
     Active Substance: OCRELIZUMAB
     Route: 065
     Dates: start: 20190322
  3. BENADRYL [Concomitant]
     Active Substance: DIPHENHYDRAMINE HYDROCHLORIDE
  4. KLONOPIN [Suspect]
     Active Substance: CLONAZEPAM
     Indication: TREMOR
     Dosage: STARTED AT ABOUT 10 YEARS AGO ;ONGOING: YES
     Route: 065
  5. NEURONTIN [Concomitant]
     Active Substance: GABAPENTIN
     Dosage: AT NIGHT, ONE PILL ;ONGOING: YES
     Route: 065
  6. ASPIRIN [ACETYLSALICYLIC ACID] [Concomitant]
     Active Substance: ASPIRIN
     Dosage: ONGOING: YES
     Route: 065
  7. VITAMIN D3 [Concomitant]
     Active Substance: CHOLECALCIFEROL
     Indication: VITAMIN D DEFICIENCY
     Dosage: ONGOING: NO
     Route: 065
  8. PROVENTIL [Concomitant]
     Active Substance: ALBUTEROL
     Indication: ASTHMA
     Dosage: ONGOING: YES
     Route: 065

REACTIONS (4)
  - Transient ischaemic attack [Unknown]
  - Somnolence [Recovered/Resolved]
  - Dysstasia [Unknown]
  - Fatigue [Not Recovered/Not Resolved]

NARRATIVE: CASE EVENT DATE: 20190308
